FAERS Safety Report 8048835-0 (Version None)
Quarter: 2011Q4

REPORT INFORMATION
  Report Type: 
  Country: None (occurrence: None)
  Receive Date: 20111209
  Receipt Date: 20110812
  Transmission Date: 20120403
  Serious: No
  Sender: FDA-Public Use
  Company Number: 2011SP038431

PATIENT
  Age: 51 Year
  Sex: Male

DRUGS (10)
  1. PEG-INTRON [Suspect]
     Indication: PRODUCT USED FOR UNKNOWN INDICATION
  2. ATIVAN [Concomitant]
  3. SEROQUEL [Concomitant]
  4. LAMICTAL [Concomitant]
  5. NEURONTIN [Concomitant]
  6. RIBAVIRIN [Suspect]
     Indication: PRODUCT USED FOR UNKNOWN INDICATION
  7. CELEXA [Concomitant]
  8. ASPIRIN [Concomitant]
  9. VICTRELIS [Suspect]
     Indication: PRODUCT USED FOR UNKNOWN INDICATION
     Dosage: 800 MG; TID; PO
     Route: 048
     Dates: start: 20110620
  10. BOTOX [Concomitant]

REACTIONS (10)
  - SKIN DISORDER [None]
  - APPETITE DISORDER [None]
  - DEPRESSION [None]
  - GASTRIC DISORDER [None]
  - ANXIETY [None]
  - COUGH [None]
  - RESPIRATORY TRACT IRRITATION [None]
  - OBSESSIVE-COMPULSIVE DISORDER [None]
  - DYSCHEZIA [None]
  - BLOOD URIC ACID ABNORMAL [None]
